FAERS Safety Report 10030844 (Version 1)
Quarter: 2014Q1

REPORT INFORMATION
  Report Type: Spontaneous
  Country: US (occurrence: US)
  Receive Date: 20140323
  Receipt Date: 20140323
  Transmission Date: 20141002
  Serious: Yes (Life-Threatening)
  Sender: FDA-Public Use
  Company Number: US-009507513-1403USA008738

PATIENT
  Sex: Male

DRUGS (1)
  1. DULERA [Suspect]
     Route: 055

REACTIONS (1)
  - Candida infection [Unknown]
